FAERS Safety Report 23697017 (Version 1)
Quarter: 2024Q2

REPORT INFORMATION
  Report Type: Spontaneous
  Country: CN (occurrence: CN)
  Receive Date: 20240402
  Receipt Date: 20240402
  Transmission Date: 20240716
  Serious: Yes (Life-Threatening, Hospitalization, Other)
  Sender: FDA-Public Use
  Company Number: CN-DSJP-DSJ-2024-114557

PATIENT
  Age: 57 Year
  Sex: Female
  Weight: 59.2 kg

DRUGS (2)
  1. ENHERTU [Suspect]
     Active Substance: FAM-TRASTUZUMAB DERUXTECAN-NXKI
     Indication: Breast cancer
     Dosage: 260 MG, QD
     Route: 041
     Dates: start: 20240316, end: 20240316
  2. SODIUM CHLORIDE [Concomitant]
     Active Substance: SODIUM CHLORIDE
     Indication: Product used for unknown indication
     Dosage: 100 ML, QD
     Route: 041
     Dates: start: 20240316, end: 20240316

REACTIONS (2)
  - Myelosuppression [Unknown]
  - Haematemesis [Unknown]

NARRATIVE: CASE EVENT DATE: 20240319
